FAERS Safety Report 5348946-4 (Version None)
Quarter: 2007Q2

REPORT INFORMATION
  Report Type: 
  Country: None (occurrence: None)
  Receive Date: 20070607
  Receipt Date: 20070528
  Transmission Date: 20071010
  Serious: Yes (Other)
  Sender: FDA-Public Use
  Company Number: PHBS2007JP01576

PATIENT
  Age: 69 Year
  Sex: Male
  Weight: 69 kg

DRUGS (11)
  1. TEGRETOL [Suspect]
     Route: 048
  2. VOLTAREN [Suspect]
     Route: 048
  3. DEPAS [Concomitant]
     Route: 048
  4. MAALOX FAST BLOCKER [Concomitant]
     Route: 048
  5. RANITAC [Concomitant]
     Route: 048
  6. KAKKON-TO [Concomitant]
     Route: 048
  7. BISOPOLLON [Concomitant]
  8. RESPLEN [Concomitant]
  9. RIKAVERIN [Concomitant]
  10. SELBEX [Concomitant]
  11. RANITAC [Concomitant]

REACTIONS (5)
  - ALANINE AMINOTRANSFERASE INCREASED [None]
  - ASPARTATE AMINOTRANSFERASE INCREASED [None]
  - ERYTHEMA MULTIFORME [None]
  - GAMMA-GLUTAMYLTRANSFERASE INCREASED [None]
  - RASH [None]
